FAERS Safety Report 4316914-7 (Version None)
Quarter: 2004Q1

REPORT INFORMATION
  Report Type: 
  Country: None (occurrence: None)
  Receive Date: 20040308
  Receipt Date: 20031114
  Transmission Date: 20041129
  Serious: Yes (Life-Threatening, Hospitalization)
  Sender: FDA-Public Use
  Company Number: 778

PATIENT
  Age: 14 Year
  Sex: Male

DRUGS (2)
  1. AMNESTEEM [Suspect]
     Indication: ACNE
     Dosage: 40 MG PO OD
     Route: 048
     Dates: start: 20030926, end: 20031001
  2. AMNESTEEM [Suspect]
     Indication: ACNE
     Dosage: 40 MG PO OD
     Route: 048
     Dates: start: 20031020

REACTIONS (2)
  - DEPRESSION [None]
  - SUICIDE ATTEMPT [None]
